FAERS Safety Report 5062579-9 (Version None)
Quarter: 2006Q3

REPORT INFORMATION
  Report Type: 
  Country: None (occurrence: None)
  Receive Date: 20060703
  Receipt Date: 20051128
  Transmission Date: 20061208
  Serious: No
  Sender: FDA-Public Use
  Company Number: 2005S1011585

PATIENT
  Age: 40 Year
  Sex: Female

DRUGS (6)
  1. CLOZAPINE [Suspect]
     Indication: SCHIZOAFFECTIVE DISORDER
     Dosage: 200 MG;HS;PO
     Route: 048
     Dates: start: 20051025
  2. ROSIGLITAZONE/METFORMIN [Concomitant]
  3. BENZTROPINE MESYLATE [Concomitant]
  4. LISINOPRIL [Concomitant]
  5. CLONIDINE [Concomitant]
  6. ATORVASTATIN CALCIUM [Concomitant]

REACTIONS (1)
  - GRANULOCYTOPENIA [None]
